FAERS Safety Report 8908114 (Version 3)
Quarter: 2012Q4

REPORT INFORMATION
  Report Type: 
  Country: US (occurrence: US)
  Receive Date: 20121113
  Receipt Date: 20121203
  Transmission Date: 20130627
  Serious: Yes (Death)
  Sender: FDA-Public Use
  Company Number: US-009507513-1211USA003290

PATIENT
  Age: 75 Year
  Sex: Male

DRUGS (4)
  1. DULERA [Suspect]
     Indication: CHRONIC OBSTRUCTIVE PULMONARY DISEASE
     Dosage: 200/5 Microgram, bid
     Route: 055
  2. DULERA [Suspect]
     Indication: EMPHYSEMA
  3. SPIRIVA [Concomitant]
     Route: 055
  4. FLOMAX (MORNIFLUMATE) [Concomitant]

REACTIONS (2)
  - Pulmonary embolism [Fatal]
  - Cardiac arrest [Unknown]
